FAERS Safety Report 10940636 (Version 2)
Quarter: 2015Q2

REPORT INFORMATION
  Report Type: Spontaneous
  Country: US (occurrence: US)
  Receive Date: 20150322
  Receipt Date: 20150524
  Transmission Date: 20150821
  Serious: No
  Sender: FDA-Public Use
  Company Number: US-JNJFOC-20130607921

PATIENT
  Sex: Female

DRUGS (2)
  1. OTHER THERAPEUTIC AGENT [Concomitant]
     Active Substance: UNSPECIFIED INGREDIENT
     Indication: HYPERGLYCAEMIA
  2. INVOKANA [Suspect]
     Active Substance: CANAGLIFLOZIN
     Indication: DIABETES MELLITUS
     Route: 065

REACTIONS (2)
  - Fungal infection [Recovered/Resolved]
  - Urinary tract infection [Recovered/Resolved]
